FAERS Safety Report 6690256-7 (Version None)
Quarter: 2010Q2

REPORT INFORMATION
  Report Type: 
  Country: None (occurrence: None)
  Receive Date: 20100421
  Receipt Date: 20100413
  Transmission Date: 20101027
  Serious: Yes (Other)
  Sender: FDA-Public Use
  Company Number: JP-ROCHE-696825

PATIENT
  Sex: Male
  Weight: 51 kg

DRUGS (2)
  1. ROCEPHIN [Suspect]
     Indication: SINUSITIS
     Route: 041
     Dates: start: 20100403, end: 20100403
  2. MIDOCIN [Suspect]
     Indication: SINUSITIS
     Route: 042
     Dates: start: 20100403

REACTIONS (1)
  - ANAPHYLACTIC REACTION [None]
